FAERS Safety Report 4501622-X (Version None)
Quarter: 2004Q4

REPORT INFORMATION
  Report Type: 
  Country: None (occurrence: None)
  Receive Date: 20040928
  Receipt Date: 20040827
  Transmission Date: 20050328
  Serious: No
  Sender: FDA-Public Use
  Company Number: 04P-163-0271779-00

PATIENT
  Age: 64 Year
  Sex: Female

DRUGS (5)
  1. HUMIRA [Suspect]
     Dosage: 40 MG, SUBCUTANEOUS
     Route: 058
     Dates: start: 20030505, end: 20040101
  2. DIAZEPAM [Concomitant]
  3. FENTANYL [Concomitant]
  4. HYDROCODONE [Concomitant]
  5. LISINOPRIL [Concomitant]

REACTIONS (1)
  - ACTINIC KERATOSIS [None]
